FAERS Safety Report 8904130 (Version 1)
Quarter: 2012Q4

REPORT INFORMATION
  Report Type: 
  Country: US (occurrence: US)
  Receive Date: 20121113
  Receipt Date: 20121113
  Transmission Date: 20130627
  Serious: Yes (Other)
  Sender: FDA-Public Use
  Company Number: US-009507513-0608USA04964

PATIENT

DRUGS (8)
  1. FOSAMAX [Suspect]
     Indication: OSTEOPENIA
     Dosage: 35 mg, QW
     Route: 048
     Dates: start: 2001, end: 20060807
  2. FOSAMAX [Suspect]
     Dosage: 70 mg, QW
     Route: 048
     Dates: start: 200312, end: 201101
  3. CLONAZEPAM [Concomitant]
  4. CELEBREX [Concomitant]
  5. MECLIZINE [Concomitant]
  6. NASONEX [Concomitant]
  7. VYTORIN [Concomitant]
     Route: 048
  8. TRIAMTERENE [Concomitant]

REACTIONS (19)
  - Femur fracture [Unknown]
  - Dyspepsia [Recovered/Resolved]
  - Nausea [Recovering/Resolving]
  - Dyspepsia [Recovering/Resolving]
  - Ageusia [Recovering/Resolving]
  - Myalgia [Recovered/Resolved]
  - Eructation [Unknown]
  - Gastrooesophageal reflux disease [Unknown]
  - Chest pain [Unknown]
  - Dysphagia [Recovering/Resolving]
  - Oesophageal stenosis [Unknown]
  - Oropharyngeal pain [Unknown]
  - Anosmia [Recovering/Resolving]
  - Dysphonia [Unknown]
  - Pain [Unknown]
  - Oral candidiasis [Recovered/Resolved]
  - Decreased immune responsiveness [Unknown]
  - Influenza [Unknown]
  - Oral candidiasis [Recovered/Resolved]
